FAERS Safety Report 23014909 (Version 1)
Quarter: 2023Q4

REPORT INFORMATION
  Report Type: Spontaneous
  Country: JP (occurrence: JP)
  Receive Date: 20231002
  Receipt Date: 20231002
  Transmission Date: 20240110
  Serious: Yes (Hospitalization)
  Sender: FDA-Public Use
  Company Number: JP-Eisai-202304213_LEN_P_1

PATIENT
  Sex: Female
  Weight: 59 kg

DRUGS (4)
  1. LENVIMA [Suspect]
     Active Substance: LENVATINIB
     Indication: Anaplastic thyroid cancer
     Route: 048
     Dates: start: 20220606, end: 20220724
  2. LENVIMA [Suspect]
     Active Substance: LENVATINIB
     Route: 048
     Dates: start: 20220725, end: 20220904
  3. LENVIMA [Suspect]
     Active Substance: LENVATINIB
     Route: 048
     Dates: start: 20220905, end: 20220917
  4. LENVIMA [Suspect]
     Active Substance: LENVATINIB
     Dosage: MONDAY TO FRIDAY: TAKING THE DRUG ORALLY, SATURDAY AND SUNDAY: WITHDRAWAL
     Route: 048
     Dates: start: 20221003, end: 20230205

REACTIONS (2)
  - Malaise [Recovering/Resolving]
  - Decreased appetite [Recovering/Resolving]

NARRATIVE: CASE EVENT DATE: 20220916
